FAERS Safety Report 5398239-4 (Version None)
Quarter: 2007Q3

REPORT INFORMATION
  Report Type: 
  Country: None (occurrence: None)
  Receive Date: 20070726
  Receipt Date: 20070723
  Transmission Date: 20080115
  Serious: Yes (Hospitalization, Other)
  Sender: FDA-Public Use
  Company Number: AU-BOEHRINGER INGELHEIM PHARMACEUTICALS, INC.-2007-BP-17910YA

PATIENT
  Sex: Male

DRUGS (3)
  1. TAMSULOSIN HCL [Suspect]
     Indication: BENIGN PROSTATIC HYPERPLASIA
     Route: 048
     Dates: start: 20070619, end: 20070629
  2. AVAPRO [Concomitant]
  3. CARTIA XT [Concomitant]

REACTIONS (6)
  - DIZZINESS [None]
  - DIZZINESS POSTURAL [None]
  - ERYTHEMA [None]
  - HEART RATE INCREASED [None]
  - HOT FLUSH [None]
  - RASH PRURITIC [None]
